FAERS Safety Report 16779775 (Version 1)
Quarter: 2019Q3

REPORT INFORMATION
  Report Type: Spontaneous
  Country: US (occurrence: US)
  Receive Date: 20190906
  Receipt Date: 20190906
  Transmission Date: 20191005
  Serious: Yes (Other)
  Sender: FDA-Public Use
  Company Number: US-ASTRAZENECA-2019SF26032

PATIENT
  Sex: Male

DRUGS (3)
  1. BRIO INHALER [Concomitant]
     Dosage: UNKNOWN
     Route: 065
  2. SINGULAIR [Concomitant]
     Active Substance: MONTELUKAST SODIUM
     Route: 065
  3. FASENRA [Suspect]
     Active Substance: BENRALIZUMAB
     Indication: ASTHMA
     Route: 058
     Dates: start: 20180920, end: 20190820

REACTIONS (11)
  - Chest pain [Unknown]
  - Pain in extremity [Unknown]
  - Pyrexia [Unknown]
  - Fatigue [Unknown]
  - Headache [Unknown]
  - Diarrhoea [Unknown]
  - Asthma [Recovering/Resolving]
  - Chills [Unknown]
  - Muscular weakness [Unknown]
  - Arthralgia [Unknown]
  - Asthenia [Recovering/Resolving]

NARRATIVE: CASE EVENT DATE: 20190822
